FAERS Safety Report 12569201 (Version 1)
Quarter: 2016Q3

REPORT INFORMATION
  Report Type: Spontaneous
  Country: US (occurrence: None)
  Receive Date: 20160718
  Receipt Date: 20160718
  Transmission Date: 20161109
  Serious: Yes (Other)
  Sender: FDA-Public Use
  Company Number: None

PATIENT
  Age: 69 Year
  Sex: Female

DRUGS (19)
  1. LISINOPRIL (PRINIVIL/ZESTRIL) [Concomitant]
  2. MODAFINIL (PROVIGIL) [Concomitant]
  3. LIPITOR [Concomitant]
     Active Substance: ATORVASTATIN CALCIUM
  4. BOTOX [Concomitant]
     Active Substance: ONABOTULINUMTOXINA
  5. NORCO [Concomitant]
     Active Substance: ACETAMINOPHEN\HYDROCODONE BITARTRATE
  6. OXYBUTYNIN (DITROPAN XL) [Concomitant]
  7. ESTROGENS CONJUGATED (PREMARIN) [Concomitant]
  8. BECLOMETHASONE DIPROPIONATE (QVAR) [Concomitant]
  9. AMPYRA [Suspect]
     Active Substance: DALFAMPRIDINE
     Indication: MULTIPLE SCLEROSIS
     Route: 048
     Dates: start: 201006
  10. LIORESAL [Concomitant]
     Active Substance: BACLOFEN
  11. NORVASC [Concomitant]
     Active Substance: AMLODIPINE BESYLATE
  12. HUMULIN N KWIKPEN [Concomitant]
  13. INSULIN LISPRO (HUMALOG KWIKPEN) [Concomitant]
  14. DOCOSAHEXANOIC ACID/EPA (FISH OIL ORAL) [Concomitant]
  15. LASIX [Concomitant]
     Active Substance: FUROSEMIDE
  16. MOBIC [Concomitant]
     Active Substance: MELOXICAM
  17. FLONASE [Concomitant]
     Active Substance: FLUTICASONE PROPIONATE
  18. ALBUTEROL (PROAIR/PROVENTIL/VENTOLIN) [Concomitant]
  19. ASPIRIN (ECOTRIN LOW STRENGTH) [Concomitant]

REACTIONS (3)
  - Urinary tract infection [None]
  - Enterococcus test positive [None]
  - Proteus test positive [None]

NARRATIVE: CASE EVENT DATE: 20160704
